FAERS Safety Report 4773185-5 (Version None)
Quarter: 2005Q3

REPORT INFORMATION
  Report Type: 
  Country: None (occurrence: None)
  Receive Date: 20050919
  Receipt Date: 20050914
  Transmission Date: 20060218
  Serious: Yes (Hospitalization)
  Sender: FDA-Public Use
  Company Number: US-MERCK-0509USA01936

PATIENT
  Age: 42 Year
  Sex: Female

DRUGS (2)
  1. VIOXX [Suspect]
     Indication: PAIN
     Route: 048
     Dates: start: 19990101, end: 20010101
  2. [THERAPY UNSPECIFIED] [Concomitant]
     Route: 065

REACTIONS (5)
  - CARDIOMEGALY [None]
  - HEPATIC FAILURE [None]
  - HEPATIC FUNCTION ABNORMAL [None]
  - RENAL FAILURE [None]
  - RENAL IMPAIRMENT [None]
